FAERS Safety Report 13790361 (Version 8)
Quarter: 2021Q2

REPORT INFORMATION
  Report Type: Report from Study
  Country: JP (occurrence: JP)
  Receive Date: 20170725
  Receipt Date: 20210415
  Transmission Date: 20210716
  Serious: Yes (Death, Hospitalization, Other)
  Sender: FDA-Public Use
  Company Number: JP-ARIAD PHARMACEUTICALS, INC-2017JP008581

PATIENT
  Age: 41 Year
  Sex: Male
  Weight: 58 kg

DRUGS (5)
  1. PONATINIB [Suspect]
     Active Substance: PONATINIB
     Dosage: 45 MILLIGRAM, QD
     Route: 048
     Dates: start: 20170114, end: 20170123
  2. PONATINIB [Suspect]
     Active Substance: PONATINIB
     Indication: ACUTE LYMPHOCYTIC LEUKAEMIA RECURRENT
     Dosage: 30 MILLIGRAM, QD
     Route: 048
     Dates: start: 20170105, end: 20170113
  3. CLARITH [Concomitant]
     Active Substance: CLARITHROMYCIN
     Indication: PRODUCT USED FOR UNKNOWN INDICATION
     Dosage: UNK
     Route: 065
     Dates: start: 20170406, end: 20170419
  4. BAYASPIRIN [Concomitant]
     Active Substance: ASPIRIN
     Indication: PROPHYLAXIS
     Dosage: UNK
     Route: 065
  5. PONATINIB [Suspect]
     Active Substance: PONATINIB
     Dosage: 30 MILLIGRAM, QD
     Route: 048
     Dates: start: 20170124, end: 20170703

REACTIONS (10)
  - Dry eye [Unknown]
  - Pyrexia [Unknown]
  - Myocardial infarction [Fatal]
  - Electrocardiogram abnormal [Unknown]
  - Dyspnoea [Unknown]
  - Cholecystitis [Unknown]
  - Diarrhoea [Unknown]
  - Hypertension [Not Recovered/Not Resolved]
  - Palpitations [Recovering/Resolving]
  - Renal impairment [Not Recovered/Not Resolved]

NARRATIVE: CASE EVENT DATE: 20170116
